FAERS Safety Report 15137275 (Version 4)
Quarter: 2019Q3

REPORT INFORMATION
  Report Type: Spontaneous
  Country: US (occurrence: US)
  Receive Date: 20180712
  Receipt Date: 20190927
  Transmission Date: 20191004
  Serious: Yes (Hospitalization, Other)
  Sender: FDA-Public Use
  Company Number: US-VIFOR (INTERNATIONAL) INC.-VIT-2018-06690

PATIENT
  Age: 71 Year
  Sex: Female

DRUGS (15)
  1. FERROUS GLUCONATE [Concomitant]
     Active Substance: FERROUS GLUCONATE
  2. DEPAKOTE [Concomitant]
     Active Substance: DIVALPROEX SODIUM
  3. NOVOLOG [Concomitant]
     Active Substance: INSULIN ASPART
  4. LISINOPRIL. [Concomitant]
     Active Substance: LISINOPRIL
  5. XARELTO [Concomitant]
     Active Substance: RIVAROXABAN
  6. CRESTOR [Concomitant]
     Active Substance: ROSUVASTATIN CALCIUM
  7. FISH OIL CONCENTRATE [Concomitant]
     Active Substance: FISH OIL
  8. ATENOLOL. [Concomitant]
     Active Substance: ATENOLOL
  9. LEVEMIR [Concomitant]
     Active Substance: INSULIN DETEMIR
  10. JANUVIA [Concomitant]
     Active Substance: SITAGLIPTIN PHOSPHATE
  11. ALLOPURINOL. [Concomitant]
     Active Substance: ALLOPURINOL
  12. LANTUS [Concomitant]
     Active Substance: INSULIN GLARGINE
  13. VELTASSA [Suspect]
     Active Substance: PATIROMER
     Indication: HYPERKALAEMIA
     Route: 048
     Dates: start: 20160217
  14. DILTIAZEM HCL [Concomitant]
     Active Substance: DILTIAZEM HYDROCHLORIDE
  15. TYLENOL [Concomitant]
     Active Substance: ACETAMINOPHEN

REACTIONS (6)
  - Malaise [Unknown]
  - Intentional dose omission [Not Recovered/Not Resolved]
  - Fatigue [Unknown]
  - Atrial flutter [Unknown]
  - Blood iron decreased [Unknown]
  - Feeling abnormal [Unknown]

NARRATIVE: CASE EVENT DATE: 20190807
